FAERS Safety Report 7571268-8 (Version None)
Quarter: 2011Q2

REPORT INFORMATION
  Report Type: 
  Country: None (occurrence: None)
  Receive Date: 20110624
  Receipt Date: 20110617
  Transmission Date: 20111010
  Serious: Yes (Other)
  Sender: FDA-Public Use
  Company Number: A0932576A

PATIENT
  Sex: Male

DRUGS (2)
  1. STEROID INHALED [Suspect]
     Route: 055
  2. ADVAIR DISKUS 100/50 [Suspect]
     Indication: EMPHYSEMA
     Route: 065
     Dates: start: 20100101

REACTIONS (3)
  - DYSPNOEA [None]
  - CHEST PAIN [None]
  - MYOCARDIAL INFARCTION [None]
